FAERS Safety Report 13302324 (Version 1)
Quarter: 2017Q1

REPORT INFORMATION
  Report Type: Spontaneous
  Country: US (occurrence: US)
  Receive Date: 20170307
  Receipt Date: 20170307
  Transmission Date: 20170428
  Serious: No
  Sender: FDA-Public Use
  Company Number: US-PFIZER INC-2017099188

PATIENT
  Age: 54 Year
  Sex: Male
  Weight: 98 kg

DRUGS (14)
  1. GENOTROPIN [Suspect]
     Active Substance: SOMATROPIN
     Indication: HYPOGONADISM MALE
     Dosage: 0.4 MG, DAILY
  2. TRAZODONE HYDROCHLORIDE. [Concomitant]
     Active Substance: TRAZODONE HYDROCHLORIDE
     Dosage: 50 MG, 1X/DAY (1 TABLET AT BEDTIME)
  3. PROZAC [Concomitant]
     Active Substance: FLUOXETINE HYDROCHLORIDE
     Dosage: 40 MG, 1X/DAY (IN THE MORNING)
  4. TRANXENE T-TAB [Concomitant]
     Active Substance: CLORAZEPATE DIPOTASSIUM
     Dosage: 3.75 MG, 1X/DAY
  5. TESTOSTERONE. [Concomitant]
     Active Substance: TESTOSTERONE
     Dosage: 1 DF, UNK [EVERY 2 WEEKS]
  6. GENOTROPIN [Suspect]
     Active Substance: SOMATROPIN
     Indication: TESTICULAR FAILURE
  7. BUSPIRONE HCL [Concomitant]
     Active Substance: BUSPIRONE HYDROCHLORIDE
     Dosage: 10 MG, 1X/DAY
  8. SYNTHROID [Concomitant]
     Active Substance: LEVOTHYROXINE SODIUM
     Dosage: 150 UG, 1X/DAY
  9. SYNTHROID [Concomitant]
     Active Substance: LEVOTHYROXINE SODIUM
     Dosage: 125 UG, 1X/DAY (ON AN EMPTY STOMACH AT LEAST 30 MINS PRIOR TO EATING OR TAKING OTHER MEDS)
  10. SUPREP BOWEL PREP [Concomitant]
     Active Substance: MAGNESIUM SULFATE\POTASSIUM SULFATE\SODIUM SULFATE
     Dosage: UNK
  11. CABERGOLINE. [Concomitant]
     Active Substance: CABERGOLINE
     Dosage: 0.25 MG, 2X/WEEK (1/2 TABLET TWICE WEEKLY)
  12. VICOPROFEN [Concomitant]
     Active Substance: HYDROCODONE BITARTRATE\IBUPROFEN
     Dosage: 1 DF, AS NEEDED (IBUPROFEN-7.5 MG), (HYDROCODONE-200 MG) [EVERY 6 HRS]
  13. PROPRANOLOL HCL [Concomitant]
     Active Substance: PROPRANOLOL HYDROCHLORIDE
     Dosage: 20 MG, 1X/DAY
  14. SIMETHICONE (DIMETHICONE) [Concomitant]
     Active Substance: DIMETHICONE
     Indication: FLATULENCE
     Dosage: 180 MG, AS NEEDED (TWICE A DAY)

REACTIONS (3)
  - Asthenia [Unknown]
  - Fatigue [Unknown]
  - Product use issue [Unknown]
